FAERS Safety Report 24086675 (Version 1)
Quarter: 2024Q3

REPORT INFORMATION
  Report Type: Spontaneous
  Country: CN (occurrence: CN)
  Receive Date: 20240713
  Receipt Date: 20240713
  Transmission Date: 20241016
  Serious: Yes (Hospitalization)
  Sender: AMGEN
  Company Number: CN-AMGEN-CHNSP2024136188

PATIENT
  Age: 72 Year
  Sex: Female
  Weight: 52 kg

DRUGS (3)
  1. XGEVA [Suspect]
     Active Substance: DENOSUMAB
     Indication: Metastases to bone
     Dosage: 120 MILLIGRAM
     Route: 058
     Dates: start: 20240530, end: 20240530
  2. TAGRISSO [Suspect]
     Active Substance: OSIMERTINIB
     Indication: Bone cancer
     Dosage: 80 MILLIGRAM
     Route: 048
     Dates: start: 20240530, end: 20240530
  3. ALIMTA [Suspect]
     Active Substance: PEMETREXED DISODIUM
     Indication: Bone cancer
     Dosage: 0.8 GRAM
     Route: 042
     Dates: start: 20240530, end: 20240530

REACTIONS (1)
  - Neutrophil count decreased [Recovering/Resolving]

NARRATIVE: CASE EVENT DATE: 20240607
